FAERS Safety Report 24593123 (Version 1)
Quarter: 2024Q4

REPORT INFORMATION
  Report Type: Spontaneous
  Country: US (occurrence: None)
  Receive Date: 20241107
  Receipt Date: 20241107
  Transmission Date: 20250114
  Serious: Yes (Life-Threatening, Disabling, Other)
  Sender: Public
  Company Number: None

PATIENT
  Age: 45 Year
  Sex: Female
  Weight: 72 kg

DRUGS (10)
  1. ZEPBOUND [Suspect]
     Active Substance: TIRZEPATIDE
     Indication: Weight decreased
     Dosage: 4 INJECTIONS INTRAMUSCULAR
     Route: 030
     Dates: start: 20240423, end: 20240514
  2. ZEPBOUND [Suspect]
     Active Substance: TIRZEPATIDE
     Indication: Weight decreased
     Dosage: OTHER QUANTITY : 4 INJECTION(S)?OTHER FREQUENCY : ONCE PER WEEK?
     Route: 030
     Dates: start: 20240423, end: 20240528
  3. PREDNISONE [Concomitant]
     Active Substance: PREDNISONE
  4. SULFAMETHOXAZOLE\TRIMETHOPRIM [Concomitant]
     Active Substance: SULFAMETHOXAZOLE\TRIMETHOPRIM
  5. calcium carb-cholecalciferol [Concomitant]
  6. LISINOPRIL [Concomitant]
     Active Substance: LISINOPRIL
  7. CYCLOBENZAPRINE [Concomitant]
     Active Substance: CYCLOBENZAPRINE
  8. RITUXIMAB [Concomitant]
     Active Substance: RITUXIMAB
  9. TRAZODONE [Concomitant]
     Active Substance: TRAZODONE HYDROCHLORIDE
  10. FOLATE SODIUM [Concomitant]
     Active Substance: FOLATE SODIUM

REACTIONS (9)
  - Pain [None]
  - Pain in extremity [None]
  - Paraesthesia [None]
  - Chest pain [None]
  - Abdominal pain upper [None]
  - Hypoaesthesia [None]
  - Gait disturbance [None]
  - Inflammation [None]
  - Nervous system disorder [None]

NARRATIVE: CASE EVENT DATE: 20240423
